FAERS Safety Report 25612140 (Version 1)
Quarter: 2025Q3

REPORT INFORMATION
  Report Type: Spontaneous
  Country: EU (occurrence: EU)
  Receive Date: 20250728
  Receipt Date: 20250728
  Transmission Date: 20251021
  Serious: Yes (Life-Threatening, Other)
  Sender: FERRING
  Company Number: None

PATIENT

DRUGS (2)
  1. MINIRIN [Suspect]
     Active Substance: DESMOPRESSIN ACETATE
     Indication: Urinary incontinence
     Route: 045
     Dates: start: 19951101, end: 19951114
  2. TEGRETOL [Suspect]
     Active Substance: CARBAMAZEPINE
     Indication: Disturbance in social behaviour
     Route: 048
     Dates: start: 19951020, end: 19951115

REACTIONS (1)
  - Stevens-Johnson syndrome [Recovered/Resolved]

NARRATIVE: CASE EVENT DATE: 19951114
